FAERS Safety Report 5258765-5 (Version None)
Quarter: 2007Q1

REPORT INFORMATION
  Report Type: 
  Country: None (occurrence: None)
  Receive Date: 20070306
  Receipt Date: 20070306
  Transmission Date: 20070707
  Serious: Yes (Other)
  Sender: FDA-Public Use
  Company Number: None

PATIENT
  Sex: Female
  Weight: 51.7101 kg

DRUGS (2)
  1. EFFEXOR XR [Suspect]
     Indication: ANXIETY
     Dosage: 37.5MG  ONCE DAILY  PO
     Route: 048
     Dates: start: 20070220, end: 20070223
  2. ABILIFY [Suspect]
     Indication: ANXIETY
     Dosage: 2 MG   ONCE DAILY  PO
     Route: 048
     Dates: start: 20070223, end: 20070223

REACTIONS (1)
  - ERYTHEMA MULTIFORME [None]
